FAERS Safety Report 5104904-6 (Version None)
Quarter: 2006Q3

REPORT INFORMATION
  Report Type: 
  Country: None (occurrence: None)
  Receive Date: 20060911
  Receipt Date: 20060911
  Transmission Date: 20061208
  Serious: Yes (Death, Hospitalization)
  Sender: FDA-Public Use
  Company Number: None

PATIENT
  Sex: Male
  Weight: 101 kg

DRUGS (1)
  1. GEMCITABINE HCL [Suspect]
     Dosage: 6480 MG
     Dates: start: 20050126

REACTIONS (1)
  - CEREBROVASCULAR ACCIDENT [None]
